FAERS Safety Report 11785361 (Version 1)
Quarter: 2015Q4

REPORT INFORMATION
  Report Type: Spontaneous
  Country: US (occurrence: US)
  Receive Date: 20151130
  Receipt Date: 20151130
  Transmission Date: 20160305
  Serious: No
  Sender: FDA-Public Use
  Company Number: US-JNJFOC-20151003573

PATIENT
  Age: 65 Year
  Sex: Female
  Weight: 104.33 kg

DRUGS (4)
  1. LISINOPRIL. [Concomitant]
     Active Substance: LISINOPRIL
     Dosage: 20/25 ONCE A DAY SINCE 5 YEARS
     Route: 065
  2. TYLENOL WITH CODEINE [Concomitant]
     Active Substance: ACETAMINOPHEN\CODEINE PHOSPHATE
     Dosage: EVERY 2-4 HOURS SICNE 2 WEEKS
     Route: 065
  3. TYLENOL REGULAR STRENGTH [Suspect]
     Active Substance: ACETAMINOPHEN
     Indication: PROCEDURAL PAIN
     Dosage: 2 TABLETS EVERY 4-6 HOURS
     Route: 048
     Dates: start: 20151004, end: 20151004
  4. METFORMIN [Concomitant]
     Active Substance: METFORMIN HYDROCHLORIDE
     Dosage: SINCE YEARS
     Route: 065

REACTIONS (6)
  - Product use issue [Unknown]
  - Insomnia [Recovered/Resolved]
  - Psychomotor hyperactivity [Recovered/Resolved]
  - Anxiety [Recovered/Resolved]
  - Incorrect dose administered [Unknown]
  - Energy increased [Recovered/Resolved]

NARRATIVE: CASE EVENT DATE: 20151004
